FAERS Safety Report 6218806-5 (Version None)
Quarter: 2009Q2

REPORT INFORMATION
  Report Type: 
  Country: None (occurrence: None)
  Receive Date: 20090608
  Receipt Date: 20090525
  Transmission Date: 20091009
  Serious: Yes (Other)
  Sender: FDA-Public Use
  Company Number: SE-ELI_LILLY_AND_COMPANY-SE200905005774

PATIENT
  Age: 22 Year
  Sex: Female

DRUGS (2)
  1. FLUOXETINE HYDROCHLORIDE [Suspect]
     Indication: DEPRESSION
     Dosage: 20 MG, DAILY (1/D)
     Dates: start: 19981112, end: 19990201
  2. FLUOXETINE HYDROCHLORIDE [Suspect]
     Dates: start: 19990201, end: 19990212

REACTIONS (3)
  - HALLUCINATION [None]
  - HEADACHE [None]
  - NIGHTMARE [None]
